FAERS Safety Report 20748365 (Version 1)
Quarter: 2022Q2

REPORT INFORMATION
  Report Type: Spontaneous
  Country: IN (occurrence: IN)
  Receive Date: 20220426
  Receipt Date: 20220426
  Transmission Date: 20220721
  Serious: Yes (Other)
  Sender: FDA-Public Use
  Company Number: IN-LUPIN PHARMACEUTICALS INC.-2022-05978

PATIENT
  Age: 58 Year
  Sex: Female

DRUGS (13)
  1. TRIAMCINOLONE [Suspect]
     Active Substance: TRIAMCINOLONE
     Indication: Diabetic retinopathy
     Dosage: UNK (INJECTION)
  2. TRIAMCINOLONE [Suspect]
     Active Substance: TRIAMCINOLONE
     Indication: Diabetic retinal oedema
  3. VANCOMYCIN [Suspect]
     Active Substance: VANCOMYCIN
     Indication: Endophthalmitis
     Dosage: UNK (1 MG/0.1 ML)
  4. VANCOMYCIN [Suspect]
     Active Substance: VANCOMYCIN
     Indication: Staphylococcal infection
  5. CEFTAZIDIME [Suspect]
     Active Substance: CEFTAZIDIME
     Indication: Endophthalmitis
     Dosage: UNK (2.25 MG/0.1 ML)
  6. CEFTAZIDIME [Suspect]
     Active Substance: CEFTAZIDIME
     Indication: Staphylococcal infection
  7. DEXAMETHASONE [Suspect]
     Active Substance: DEXAMETHASONE
     Indication: Endophthalmitis
     Dosage: UNK (0.4 MG/0.1 ML)
  8. DEXAMETHASONE [Suspect]
     Active Substance: DEXAMETHASONE
     Indication: Staphylococcal infection
  9. OFLOXACIN [Concomitant]
     Active Substance: OFLOXACIN
     Indication: Antibiotic prophylaxis
     Dosage: UNK (ONE DAY PRIOR TO INJECTION AND THREE TIMES DAILY FOR FIVE DAYS AFTER INJECTION)
     Route: 061
  10. PROPARACAINE [Concomitant]
     Active Substance: PROPARACAINE
     Indication: Local anaesthesia
     Dosage: UNK
     Route: 065
     Dates: start: 20171103
  11. POVIDONE-IODINE [Concomitant]
     Active Substance: POVIDONE-IODINE
     Indication: Product used for unknown indication
     Dosage: UNK 10 % SOLUTION PUT INTO THE CONJUNCTIVAL SAC)(PERIORBITAL AREA WAS CLEANED WITH IT)
  12. POVIDONE-IODINE [Concomitant]
     Active Substance: POVIDONE-IODINE
     Dosage: UNK (5% DROP PUT INTO THE CONJUNCTIVAL SAC)
  13. SALINE [Concomitant]
     Active Substance: SODIUM CHLORIDE
     Indication: Product used for unknown indication
     Dosage: UNK (PUT INTO THE CONJUNCTIVAL SAC)

REACTIONS (3)
  - Endophthalmitis [Unknown]
  - Staphylococcal infection [Unknown]
  - Off label use [Unknown]
